FAERS Safety Report 5157078-X (Version None)
Quarter: 2006Q4

REPORT INFORMATION
  Report Type: 
  Country: None (occurrence: None)
  Receive Date: 20061127
  Receipt Date: 20061114
  Transmission Date: 20070319
  Serious: Yes (Hospitalization)
  Sender: FDA-Public Use
  Company Number: PHBS2006FR17692

PATIENT
  Age: 75 Year
  Sex: Male

DRUGS (7)
  1. LOPRESSOR [Suspect]
     Indication: HYPERTENSION
     Dosage: 200 MG/DAY
     Route: 048
  2. DEBRIDAT [Concomitant]
  3. DIOSMINE [Concomitant]
  4. BROMAZEPAM [Concomitant]
  5. ESOMEPRAZOLE MAGNESIUM [Concomitant]
  6. MICARDIS [Concomitant]
  7. METHOTREXATE [Concomitant]
     Indication: ARTHRALGIA

REACTIONS (6)
  - C-REACTIVE PROTEIN INCREASED [None]
  - HYPOTENSION [None]
  - LEUKOCYTOSIS [None]
  - PYREXIA [None]
  - RASH [None]
  - SUPERINFECTION [None]
